FAERS Safety Report 5929501-1 (Version None)
Quarter: 2008Q4

REPORT INFORMATION
  Report Type: 
  Country: None (occurrence: None)
  Receive Date: 20081024
  Receipt Date: 20081022
  Transmission Date: 20090506
  Serious: Yes (Other)
  Sender: FDA-Public Use
  Company Number: A0753043A

PATIENT
  Age: 43 Year
  Sex: Female

DRUGS (5)
  1. LAMICTAL [Suspect]
     Dosage: 25MG VARIABLE DOSE
     Route: 048
     Dates: start: 20081016, end: 20081016
  2. WELLBUTRIN [Concomitant]
  3. CELEXA [Concomitant]
  4. XANAX [Concomitant]
  5. VITAMINS [Concomitant]

REACTIONS (10)
  - AMNESIA [None]
  - APHASIA [None]
  - CONFUSIONAL STATE [None]
  - DIZZINESS [None]
  - DRUG DISPENSING ERROR [None]
  - FEELING ABNORMAL [None]
  - MEDICATION ERROR [None]
  - MIGRAINE [None]
  - OVERDOSE [None]
  - VOMITING [None]
